FAERS Safety Report 20483681 (Version 2)
Quarter: 2022Q1

REPORT INFORMATION
  Report Type: Report from Study
  Country: AR (occurrence: AR)
  Receive Date: 20220217
  Receipt Date: 20220222
  Transmission Date: 20220423
  Serious: Yes (Hospitalization)
  Sender: FDA-Public Use
  Company Number: AR-BIOGEN-2021BI01054614

PATIENT
  Sex: Female

DRUGS (4)
  1. SPINRAZA [Suspect]
     Active Substance: NUSINERSEN
     Indication: Spinal muscular atrophy
     Dosage: LOADING DOSE
     Route: 037
     Dates: start: 20180906, end: 20181004
  2. SPINRAZA [Suspect]
     Active Substance: NUSINERSEN
     Dosage: LOADING DOSE
     Route: 037
     Dates: start: 20181004, end: 20181105
  3. SPINRAZA [Suspect]
     Active Substance: NUSINERSEN
     Dosage: MAINTENANCE DOSE
     Route: 037
     Dates: start: 20181105, end: 20190506
  4. SPINRAZA [Suspect]
     Active Substance: NUSINERSEN
     Dosage: MAINTENANCE  DOSE
     Route: 037
     Dates: start: 20190506

REACTIONS (3)
  - Scoliosis [Not Recovered/Not Resolved]
  - Application site pain [Recovered/Resolved]
  - Prescribed underdose [Unknown]

NARRATIVE: CASE EVENT DATE: 20200101
